FAERS Safety Report 6105923-3 (Version None)
Quarter: 2009Q1

REPORT INFORMATION
  Report Type: 
  Country: None (occurrence: None)
  Receive Date: 20090306
  Receipt Date: 20080125
  Transmission Date: 20090719
  Serious: No
  Sender: FDA-Public Use
  Company Number: US-BRISTOL-MYERS SQUIBB COMPANY-14035554

PATIENT
  Age: 48 Year
  Sex: Female
  Weight: 79 kg

DRUGS (5)
  1. TAXOL [Suspect]
     Indication: BREAST CANCER
     Dosage: TAXOL STRENGTH 150MG; FIRST INFUSION ON 05-SEP-07
     Route: 042
     Dates: start: 20071121, end: 20071121
  2. TAMOXIFEN CITRATE [Suspect]
  3. DECADRON [Concomitant]
     Indication: PREMEDICATION
     Route: 042
  4. BENADRYL [Concomitant]
     Indication: PREMEDICATION
     Route: 048
  5. TAGAMET [Concomitant]
     Indication: PREMEDICATION
     Route: 048

REACTIONS (2)
  - LUNG INFECTION [None]
  - VAGINAL DISCHARGE [None]
